FAERS Safety Report 10672317 (Version 3)
Quarter: 2015Q3

REPORT INFORMATION
  Report Type: Spontaneous
  Country: US (occurrence: US)
  Receive Date: 20141223
  Receipt Date: 20150709
  Transmission Date: 20151125
  Serious: Yes (Disabling)
  Sender: FDA-Public Use
  Company Number: US-009507513-1204USA03733

PATIENT
  Sex: Male
  Weight: 90.7 kg

DRUGS (2)
  1. PROPECIA [Suspect]
     Active Substance: FINASTERIDE
     Indication: ANDROGENETIC ALOPECIA
     Dosage: 1 MG, QD
     Route: 048
     Dates: start: 20090624, end: 20120415
  2. FLOMAX [Concomitant]
     Active Substance: TAMSULOSIN HYDROCHLORIDE
     Indication: URINARY RETENTION
     Dosage: 0.4 MG, QD
     Route: 048
     Dates: start: 20090401, end: 20100329

REACTIONS (16)
  - Testicular pain [Unknown]
  - Depression [Unknown]
  - Libido decreased [Unknown]
  - Urine flow decreased [Unknown]
  - Anxiety [Unknown]
  - Penis disorder [Unknown]
  - Erectile dysfunction [Unknown]
  - Drug ineffective [Unknown]
  - Cognitive disorder [Unknown]
  - Ejaculation disorder [Unknown]
  - Ejaculation failure [Unknown]
  - Terminal dribbling [Unknown]
  - Sexual dysfunction [Unknown]
  - Pelvic mass [Unknown]
  - Nocturia [Unknown]
  - Myelitis [Unknown]

NARRATIVE: CASE EVENT DATE: 2009
